FAERS Safety Report 10266649 (Version 2)
Quarter: 2014Q3

REPORT INFORMATION
  Report Type: Spontaneous
  Country: JP (occurrence: JP)
  Receive Date: 20140629
  Receipt Date: 20140819
  Transmission Date: 20150326
  Serious: Yes (Other)
  Sender: FDA-Public Use
  Company Number: PHHY2014JP077648

PATIENT
  Age: 64 Year
  Sex: Male

DRUGS (1)
  1. AFINITOR [Suspect]
     Active Substance: EVEROLIMUS
     Indication: RENAL CELL CARCINOMA
     Dosage: 10 MG, UNK
     Route: 048
     Dates: start: 20140527, end: 20140619

REACTIONS (2)
  - Haematemesis [Unknown]
  - Aortic aneurysm [Recovering/Resolving]

NARRATIVE: CASE EVENT DATE: 20140619
